FAERS Safety Report 6495327-6 (Version None)
Quarter: 2009Q4

REPORT INFORMATION
  Report Type: 
  Country: None (occurrence: None)
  Receive Date: 20091214
  Receipt Date: 20090602
  Transmission Date: 20100525
  Serious: No
  Sender: FDA-Public Use
  Company Number: US-BRISTOL-MYERS SQUIBB COMPANY-14645493

PATIENT
  Sex: Female
  Weight: 68 kg

DRUGS (3)
  1. ABILIFY [Suspect]
     Indication: BIPOLAR DISORDER
     Dosage: INITIATED WITH 2MG
     Dates: start: 20090401
  2. XANAX [Concomitant]
  3. CYMBALTA [Concomitant]

REACTIONS (2)
  - INSOMNIA [None]
  - NAUSEA [None]
